FAERS Safety Report 8400155-8 (Version None)
Quarter: 2012Q2

REPORT INFORMATION
  Report Type: 
  Country: None (occurrence: None)
  Receive Date: 20120531
  Receipt Date: 20120523
  Transmission Date: 20120825
  Serious: Yes (Hospitalization)
  Sender: FDA-Public Use
  Company Number: US-BAYER-2012-051966

PATIENT
  Age: 70 Year
  Sex: Female
  Weight: 113 kg

DRUGS (6)
  1. INSULIN [Concomitant]
  2. ALEVE (CAPLET) [Suspect]
     Indication: PAIN
     Dosage: 440 MG, QD
     Route: 048
  3. LISINOPRIL [Concomitant]
  4. SIMVASTATIN [Concomitant]
  5. ALEVE (CAPLET) [Suspect]
     Dosage: 440 MG, QD
     Route: 048
     Dates: start: 20111101
  6. GLUCOPHAGE [Concomitant]

REACTIONS (2)
  - CONSTIPATION [None]
  - CONTUSION [None]
